FAERS Safety Report 5426035-8 (Version None)
Quarter: 2007Q3

REPORT INFORMATION
  Report Type: 
  Country: None (occurrence: None)
  Receive Date: 20070824
  Receipt Date: 20070824
  Transmission Date: 20080115
  Serious: Yes (Disabling, Other)
  Sender: FDA-Public Use
  Company Number: None

PATIENT
  Sex: Male
  Weight: 117.4816 kg

DRUGS (1)
  1. CIALIS [Suspect]
     Indication: OPTIC ISCHAEMIC NEUROPATHY
     Dosage: 20 MG. 1 THE DAY OF INTERCOURSE

REACTIONS (2)
  - COAGULOPATHY [None]
  - VISUAL ACUITY REDUCED [None]
